FAERS Safety Report 10841287 (Version 1)
Quarter: 2015Q1

REPORT INFORMATION
  Report Type: Spontaneous
  Country: US (occurrence: US)
  Receive Date: 20150220
  Receipt Date: 20150220
  Transmission Date: 20150721
  Serious: Yes (Other)
  Sender: FDA-Public Use
  Company Number: US-ACCORD-028572

PATIENT
  Age: 12 Year
  Sex: Female

DRUGS (4)
  1. ARA-C [Concomitant]
     Active Substance: CYTARABINE
     Indication: ACUTE LYMPHOCYTIC LEUKAEMIA
     Dosage: 8 DOSES,??LAST DOSE WAS 4 DAYS PRIOR TO NEUROLOGICAL SYMPTOMS.
     Route: 042
  2. MERCAPTOPURINE. [Concomitant]
     Active Substance: MERCAPTOPURINE
     Indication: ACUTE LYMPHOCYTIC LEUKAEMIA
     Dosage: 13 DAILY DOSES
     Route: 048
  3. CYCLOPHOSPHAMIDE/CYCLOPHOSPHAMIDE MONOHYDRATE [Concomitant]
     Indication: ACUTE LYMPHOCYTIC LEUKAEMIA
     Dosage: 1 DOSE, 13 DAYS PRIOR TO NEUROLOGICAL SYMPTOMS
  4. METHOTREXATE [Suspect]
     Active Substance: METHOTREXATE
     Indication: ACUTE LYMPHOCYTIC LEUKAEMIA
     Dosage: 15 MG/DOSE ON DAY 7 AND 14.
     Route: 037

REACTIONS (4)
  - Confusional state [Unknown]
  - Hemiparesis [Unknown]
  - VIIth nerve paralysis [Unknown]
  - Neurotoxicity [Unknown]
